FAERS Safety Report 20231981 (Version 11)
Quarter: 2023Q1

REPORT INFORMATION
  Report Type: Report from Study
  Country: CA (occurrence: CA)
  Receive Date: 20211227
  Receipt Date: 20230227
  Transmission Date: 20230417
  Serious: Yes (Hospitalization, Other)
  Sender: FDA-Public Use
  Company Number: CA-TAKEDA-2021TUS081974

PATIENT
  Age: 53 Year
  Sex: Female

DRUGS (3)
  1. VEDOLIZUMAB [Suspect]
     Active Substance: VEDOLIZUMAB
     Indication: Crohn^s disease
     Dosage: 300 MILLIGRAM
     Route: 042
     Dates: start: 20211207
  2. VEDOLIZUMAB [Suspect]
     Active Substance: VEDOLIZUMAB
     Dosage: 300 MILLIGRAM
     Route: 042
     Dates: start: 20220919, end: 20221031
  3. PREDNISONE [Suspect]
     Active Substance: PREDNISONE
     Indication: Feeling abnormal
     Dosage: UNK
     Route: 065

REACTIONS (9)
  - Gastrointestinal infection [Unknown]
  - Crohn^s disease [Unknown]
  - Diarrhoea [Unknown]
  - Gastrointestinal disorder [Unknown]
  - Malaise [Not Recovered/Not Resolved]
  - Abdominal mass [Unknown]
  - Feeling abnormal [Unknown]
  - Drug specific antibody present [Unknown]
  - Drug level decreased [Unknown]

NARRATIVE: CASE EVENT DATE: 20221031
